FAERS Safety Report 18101558 (Version 1)
Quarter: 2020Q3

REPORT INFORMATION
  Report Type: Report from Study
  Country: AU (occurrence: AU)
  Receive Date: 20200801
  Receipt Date: 20200801
  Transmission Date: 20201103
  Serious: Yes (Other)
  Sender: FDA-Public Use
  Company Number: NVSC2020AU213104

PATIENT
  Age: 55 Year
  Sex: Male

DRUGS (1)
  1. EZETIMIBE. [Suspect]
     Active Substance: EZETIMIBE
     Indication: ARTERIOSCLEROSIS
     Dosage: UNK
     Route: 065
     Dates: start: 202007

REACTIONS (2)
  - Myocardial infarction [Unknown]
  - Angina unstable [Unknown]

NARRATIVE: CASE EVENT DATE: 202007
